FAERS Safety Report 13749010 (Version 1)
Quarter: 2017Q3

REPORT INFORMATION
  Report Type: Spontaneous
  Country: GB (occurrence: GB)
  Receive Date: 20170713
  Receipt Date: 20170713
  Transmission Date: 20171127
  Serious: Yes (Disabling, Other)
  Sender: FDA-Public Use
  Company Number: GB-KRKA-GB2017K5042SPO

PATIENT
  Age: 83 Year
  Sex: Female

DRUGS (22)
  1. ANHYDROUS LANOLIN, LIGHT LIQUID PARAFFIN, PARAFFIN LIGHT LIQUID, PARAF [Concomitant]
     Dates: start: 20170606
  2. MOMETASONE FUROATE. [Concomitant]
     Active Substance: MOMETASONE FUROATE
     Dates: start: 20170328
  3. DEXAMETHASONE, GLACIAL ACETIC ACID, NEOMYCIN SULFATE, NEOMYCIN SULPHAT [Concomitant]
     Dates: start: 20170328
  4. DILTIAZEM HYDROCHLORIDE. [Concomitant]
     Active Substance: DILTIAZEM HYDROCHLORIDE
     Dates: start: 20170118
  5. GLYCERYL TRINITRATE [Concomitant]
     Active Substance: NITROGLYCERIN
     Route: 060
     Dates: start: 20170201
  6. LEVOTHYROXINE. [Concomitant]
     Active Substance: LEVOTHYROXINE
     Dates: start: 20170201
  7. SUMATRIPTAN. [Concomitant]
     Active Substance: SUMATRIPTAN
     Dates: start: 20170502
  8. COLCHICINE. [Concomitant]
     Active Substance: COLCHICINE
     Dates: start: 20170118
  9. FUROSEMIDE. [Concomitant]
     Active Substance: FUROSEMIDE
     Dates: start: 20170330
  10. HIRUDOID [Concomitant]
     Active Substance: GLYCOSAMINOGLYCANS
     Dates: start: 20170328
  11. LANSOPRAZOLE GENERIC [Suspect]
     Active Substance: LANSOPRAZOLE
     Indication: PRODUCT USED FOR UNKNOWN INDICATION
     Route: 048
     Dates: start: 20170614, end: 20170628
  12. CARBOMER [Concomitant]
     Active Substance: CARBOMER
  13. EURAX [Concomitant]
     Active Substance: CROTAMITON
     Dates: start: 20170509
  14. HYPROMELLOSE [Concomitant]
     Active Substance: HYPROMELLOSES
     Dates: start: 20170502
  15. ALLOPURINOL. [Concomitant]
     Active Substance: ALLOPURINOL
     Route: 048
     Dates: start: 20170118
  16. CLOPIDOGREL [Concomitant]
     Active Substance: CLOPIDOGREL BISULFATE
     Route: 048
     Dates: start: 20170118
  17. IBUPROFEN. [Concomitant]
     Active Substance: IBUPROFEN
     Route: 061
     Dates: start: 20170201
  18. QUININE SULPHATE [Concomitant]
     Active Substance: QUININE SULFATE
     Dates: start: 20170118
  19. CANDESARTAN CILEXETIL. [Concomitant]
     Active Substance: CANDESARTAN CILEXETIL
     Route: 048
     Dates: start: 20170118
  20. BETAMETHASONE AND CALCIPOTRIOL [Concomitant]
     Dates: start: 20170524
  21. DICYCLOMINE HYDROCHLORIDE, DICYCLOVERINE HYDROCHLORIDE, DRIED ALUMINIU [Concomitant]
     Dates: start: 20170118
  22. IBUPROFEN. [Concomitant]
     Active Substance: IBUPROFEN

REACTIONS (2)
  - Suicidal ideation [Recovering/Resolving]
  - Depression [Recovering/Resolving]

NARRATIVE: CASE EVENT DATE: 20170619
